FAERS Safety Report 11527907 (Version 4)
Quarter: 2016Q4

REPORT INFORMATION
  Report Type: Spontaneous
  Country: US (occurrence: US)
  Receive Date: 20150920
  Receipt Date: 20161029
  Transmission Date: 20170206
  Serious: No
  Sender: FDA-Public Use
  Company Number: US-ASTRAZENECA-2015SE87734

PATIENT
  Age: 79 Year
  Sex: Male

DRUGS (5)
  1. TUDORZA PRESSAIR [Suspect]
     Active Substance: ACLIDINIUM BROMIDE
     Route: 055
     Dates: end: 201512
  2. OTHER MEDICATIONS [Concomitant]
     Active Substance: UNSPECIFIED INGREDIENT
  3. SYMBICORT [Concomitant]
     Active Substance: BUDESONIDE\FORMOTEROL FUMARATE DIHYDRATE
     Dosage: DOSE AND FREQUENCY UNKNOWN UNKNOWN
     Route: 055
     Dates: start: 2016
  4. TUDORZA PRESSAIR [Suspect]
     Active Substance: ACLIDINIUM BROMIDE
     Dosage: 400 MICROGRAMS TWO TIMES A DAY, INHALER NUMBER 1
     Route: 055
     Dates: start: 20150821
  5. TUDORZA PRESSAIR [Suspect]
     Active Substance: ACLIDINIUM BROMIDE
     Dosage: 400 MICROGRAMS TWO TIMES A DAY, INHALER NUMBER 2
     Route: 055
     Dates: start: 201508

REACTIONS (6)
  - Device malfunction [Unknown]
  - Dyspnoea [Unknown]
  - Drug dose omission [Unknown]
  - Intentional device misuse [Unknown]
  - Chest pain [Unknown]
  - Circumstance or information capable of leading to medication error [Unknown]

NARRATIVE: CASE EVENT DATE: 2015
